FAERS Safety Report 7364501-9 (Version None)
Quarter: 2011Q1

REPORT INFORMATION
  Report Type: 
  Country: None (occurrence: None)
  Receive Date: 20110321
  Receipt Date: 20110315
  Transmission Date: 20110831
  Serious: Yes (Hospitalization)
  Sender: FDA-Public Use
  Company Number: JP-MERCK-1102USA02422

PATIENT
  Age: 67 Year
  Sex: Female

DRUGS (6)
  1. SENNOSIDES [Concomitant]
     Route: 048
  2. MEILAX [Concomitant]
     Route: 048
  3. HALCION [Concomitant]
     Route: 048
  4. JANUVIA [Suspect]
     Indication: DIABETES MELLITUS
     Route: 048
     Dates: start: 20100626, end: 20110208
  5. MIYA BM [Concomitant]
     Route: 048
  6. FLAGYL [Concomitant]
     Route: 048

REACTIONS (1)
  - ENTEROCOLITIS [None]
